FAERS Safety Report 7551113-7 (Version None)
Quarter: 2011Q2

REPORT INFORMATION
  Report Type: 
  Country: None (occurrence: None)
  Receive Date: 20110616
  Receipt Date: 20100211
  Transmission Date: 20111010
  Serious: No
  Sender: FDA-Public Use
  Company Number: US-BAYER-201014383NA

PATIENT
  Age: 45 Year
  Sex: Female

DRUGS (3)
  1. MOTRIN [Concomitant]
     Dosage: 750 MG, TID
  2. CITALOPRAM HYDROBROMIDE [Concomitant]
     Indication: DEPRESSION
     Dosage: 40 MG, UNK
  3. MIRENA [Suspect]
     Indication: MENORRHAGIA
     Dosage: 20 MCG/24HR, CONT
     Route: 015
     Dates: start: 20091208, end: 20100208

REACTIONS (7)
  - NAUSEA [None]
  - VOMITING [None]
  - ABDOMINAL PAIN LOWER [None]
  - DECREASED APPETITE [None]
  - ABDOMINAL DISTENSION [None]
  - CHILLS [None]
  - MENORRHAGIA [None]
